FAERS Safety Report 17434094 (Version 1)
Quarter: 2020Q1

REPORT INFORMATION
  Report Type: Spontaneous
  Country: US (occurrence: US)
  Receive Date: 20200219
  Receipt Date: 20200219
  Transmission Date: 20200409
  Serious: No
  Sender: FDA-Public Use
  Company Number: US-GLAXOSMITHKLINE-US2020028880

PATIENT
  Age: 69 Year
  Sex: Female

DRUGS (1)
  1. EXCEDRIN MIGRAINE [Suspect]
     Active Substance: ACETAMINOPHEN\ASPIRIN\CAFFEINE
     Indication: MIGRAINE
     Dosage: UNK
     Dates: start: 20200212, end: 20200216

REACTIONS (4)
  - Headache [Unknown]
  - Pain [Unknown]
  - Nervousness [Unknown]
  - Malaise [Unknown]

NARRATIVE: CASE EVENT DATE: 20200212
